FAERS Safety Report 10861420 (Version 3)
Quarter: 2015Q1

REPORT INFORMATION
  Report Type: Spontaneous
  Country: US (occurrence: US)
  Receive Date: 20150224
  Receipt Date: 20150320
  Transmission Date: 20150721
  Serious: Yes (Hospitalization)
  Sender: FDA-Public Use
  Company Number: US-JNJFOC-20150211671

PATIENT
  Age: 76 Year
  Sex: Male
  Weight: 88.45 kg

DRUGS (5)
  1. COZAAR [Concomitant]
     Active Substance: LOSARTAN POTASSIUM
     Route: 048
  2. SOTALOL. [Concomitant]
     Active Substance: SOTALOL
     Route: 048
  3. XARELTO [Suspect]
     Active Substance: RIVAROXABAN
     Indication: CEREBROVASCULAR ACCIDENT PROPHYLAXIS
     Route: 048
     Dates: start: 201412, end: 201501
  4. XARELTO [Suspect]
     Active Substance: RIVAROXABAN
     Indication: ATRIAL FIBRILLATION
     Route: 048
     Dates: start: 201412, end: 201501
  5. METOPROLOL [Concomitant]
     Active Substance: METOPROLOL
     Route: 048

REACTIONS (6)
  - Carpal tunnel syndrome [Not Recovered/Not Resolved]
  - Post procedural swelling [Not Recovered/Not Resolved]
  - Paraesthesia [Unknown]
  - Impaired work ability [Unknown]
  - Hypoaesthesia [Unknown]
  - Post procedural haemorrhage [Not Recovered/Not Resolved]

NARRATIVE: CASE EVENT DATE: 201501
